FAERS Safety Report 17936009 (Version 1)
Quarter: 2020Q2

REPORT INFORMATION
  Report Type: Spontaneous
  Country: FR (occurrence: FR)
  Receive Date: 20200624
  Receipt Date: 20200624
  Transmission Date: 20200714
  Serious: Yes (Hospitalization)
  Sender: FDA-Public Use
  Company Number: NVSC2020FR173489

PATIENT
  Age: 28 Year
  Weight: 86 kg

DRUGS (3)
  1. RACECADOTRIL [Suspect]
     Active Substance: RACECADOTRIL
     Indication: PRODUCT USED FOR UNKNOWN INDICATION
     Dosage: 20 DF, 1 TOTAL (20 COMPRIM?S)
     Route: 048
     Dates: start: 20200318, end: 20200318
  2. TRAMADOL HYDROCHLORIDE. [Suspect]
     Active Substance: TRAMADOL HYDROCHLORIDE
     Indication: PRODUCT USED FOR UNKNOWN INDICATION
     Dosage: 24 DF, 1 TOTAL (24 COMPRIM?S)
     Route: 048
     Dates: start: 20200318, end: 20200318
  3. PARACETAMOL [Suspect]
     Active Substance: ACETAMINOPHEN
     Indication: PRODUCT USED FOR UNKNOWN INDICATION
     Dosage: 8 G, 1 TOTAL
     Route: 048
     Dates: start: 20200318, end: 20200318

REACTIONS (1)
  - Toxicity to various agents [Unknown]

NARRATIVE: CASE EVENT DATE: 20200318
